FAERS Safety Report 6343258-4 (Version None)
Quarter: 2009Q3

REPORT INFORMATION
  Report Type: 
  Country: None (occurrence: None)
  Receive Date: 20090908
  Receipt Date: 20090827
  Transmission Date: 20100115
  Serious: Yes (Other)
  Sender: FDA-Public Use
  Company Number: PHHY2008JP24134

PATIENT
  Age: 76 Year
  Sex: Female

DRUGS (5)
  1. GLEEVEC [Suspect]
     Indication: GASTROINTESTINAL STROMAL TUMOUR
     Dosage: 400 MG DAILY
     Route: 048
     Dates: start: 20071101
  2. GLEEVEC [Suspect]
     Dosage: 100 MG DAILY
     Route: 048
     Dates: start: 20080121
  3. GLEEVEC [Suspect]
     Dosage: 50 MG DAILY
     Route: 048
     Dates: start: 20080401
  4. GLEEVEC [Suspect]
     Dosage: 200 MG DAILY
     Route: 048
  5. ANTIALLERGIC AGENTS, EXCL CORTICOSTEROIDS [Concomitant]

REACTIONS (8)
  - BLOOD CREATINE PHOSPHOKINASE ABNORMAL [None]
  - DEAFNESS [None]
  - HYPOAESTHESIA [None]
  - HYPOAESTHESIA ORAL [None]
  - PLATELET COUNT DECREASED [None]
  - PRURITUS [None]
  - RASH GENERALISED [None]
  - WHITE BLOOD CELL COUNT DECREASED [None]
